FAERS Safety Report 15984977 (Version 1)
Quarter: 2019Q1

REPORT INFORMATION
  Report Type: Spontaneous
  Country: US (occurrence: US)
  Receive Date: 20190220
  Receipt Date: 20190220
  Transmission Date: 20190418
  Serious: Yes (Hospitalization)
  Sender: FDA-Public Use
  Company Number: US-VIFOR (INTERNATIONAL) INC.-VIT-2019-01373

PATIENT
  Age: 68 Year
  Sex: Male

DRUGS (23)
  1. ACETAMINOPHEN. [Concomitant]
     Active Substance: ACETAMINOPHEN
  2. METOPROLOL TARTRATE. [Concomitant]
     Active Substance: METOPROLOL TARTRATE
  3. VELTASSA [Suspect]
     Active Substance: PATIROMER
     Indication: ANAEMIA
     Route: 048
     Dates: start: 20181109, end: 201902
  4. AMIODARONE HCL [Concomitant]
     Active Substance: AMIODARONE HYDROCHLORIDE
  5. GABAPENTIN. [Concomitant]
     Active Substance: GABAPENTIN
  6. HUMALOG KWIKPEN [Concomitant]
     Active Substance: INSULIN LISPRO
  7. WARFARIN SODIUM. [Concomitant]
     Active Substance: WARFARIN SODIUM
  8. NEPRO [Concomitant]
     Active Substance: DIETARY SUPPLEMENT
  9. FERROUS SULFATE. [Concomitant]
     Active Substance: FERROUS SULFATE
  10. LEVOTHYROXINE SODIUM. [Concomitant]
     Active Substance: LEVOTHYROXINE SODIUM
  11. NIFEDIPINE. [Concomitant]
     Active Substance: NIFEDIPINE
  12. APLISOL [Concomitant]
     Active Substance: TUBERCULIN PURIFIED PROTEIN DERIVATIVE
  13. LIDODERM [Concomitant]
     Active Substance: LIDOCAINE
  14. MILK OF MAGNESIA [Concomitant]
     Active Substance: MAGNESIUM HYDROXIDE
  15. NYSTATIN. [Concomitant]
     Active Substance: NYSTATIN
  16. PANTOPRAZOLE SODIUM. [Concomitant]
     Active Substance: PANTOPRAZOLE SODIUM
  17. ALLOPURINOL. [Concomitant]
     Active Substance: ALLOPURINOL
  18. ATROPINE SULFATE. [Concomitant]
     Active Substance: ATROPINE SULFATE
  19. PREDNISOLONE ACETATE. [Concomitant]
     Active Substance: PREDNISOLONE ACETATE
  20. RENVELA [Concomitant]
     Active Substance: SEVELAMER CARBONATE
  21. BASAGLAR [Concomitant]
     Active Substance: INSULIN GLARGINE
  22. XEROFORM PETROLATUM DRESSING [Concomitant]
  23. MULTIPLE VITAMIN [Concomitant]
     Active Substance: VITAMINS

REACTIONS (2)
  - Gastrointestinal haemorrhage [Unknown]
  - Off label use [Unknown]

NARRATIVE: CASE EVENT DATE: 20181109
